FAERS Safety Report 4944492-8 (Version None)
Quarter: 2006Q1

REPORT INFORMATION
  Report Type: 
  Country: None (occurrence: None)
  Receive Date: 20060315
  Receipt Date: 20060314
  Transmission Date: 20060701
  Serious: Yes (Life-Threatening)
  Sender: FDA-Public Use
  Company Number: JP-SANOFI-SYNTHELABO-F01200600762

PATIENT
  Sex: Male
  Weight: 60 kg

DRUGS (3)
  1. OXALIPLATIN [Suspect]
     Indication: COLON CANCER
     Dosage: 120 MG/BODY=74.1 MG/M2, INFUSION D1
     Route: 042
     Dates: start: 20050809, end: 20050809
  2. FLUOROURACIL [Suspect]
     Indication: COLON CANCER
     Dosage: 600 MG/BODY=370.4 MG/M2 IN BOLUS THEN 900 MG/BODY=555.6 MG/M2 AS INFUSION, D1+2
     Route: 042
     Dates: start: 20050809, end: 20050810
  3. CALCIUM LEVOFOLINATE [Suspect]
     Indication: COLON CANCER
     Dosage: 150 MG/BODY=92.6 MG/M2, INFUSION D1+2
     Route: 042
     Dates: start: 20050809, end: 20050810

REACTIONS (1)
  - LOSS OF CONSCIOUSNESS [None]
